FAERS Safety Report 8214069-X (Version None)
Quarter: 2012Q1

REPORT INFORMATION
  Report Type: 
  Country: None (occurrence: None)
  Receive Date: 20120314
  Receipt Date: 20120314
  Transmission Date: 20120608
  Serious: Yes (Hospitalization)
  Sender: FDA-Public Use
  Company Number: None

PATIENT
  Sex: Male

DRUGS (1)
  1. ENBREL [Suspect]
     Indication: ANKYLOSING SPONDYLITIS
     Dosage: 50 MG QW SQ
     Route: 058
     Dates: start: 20111022, end: 20120110

REACTIONS (3)
  - INJECTION SITE CELLULITIS [None]
  - NO THERAPEUTIC RESPONSE [None]
  - DRUG HYPERSENSITIVITY [None]
